FAERS Safety Report 20751525 (Version 1)
Quarter: 2022Q2

REPORT INFORMATION
  Report Type: Spontaneous
  Country: ZA (occurrence: ZA)
  Receive Date: 20220426
  Receipt Date: 20220426
  Transmission Date: 20220720
  Serious: Yes (Hospitalization, Other)
  Sender: FDA-Public Use
  Company Number: ZA-BoehringerIngelheim-2022-BI-166514

PATIENT
  Age: 72 Year
  Sex: Female

DRUGS (7)
  1. PRADAXA [Suspect]
     Active Substance: DABIGATRAN ETEXILATE MESYLATE
     Indication: Portal vein thrombosis
     Route: 048
     Dates: end: 20220420
  2. ROSUVASTATIN [Concomitant]
     Active Substance: ROSUVASTATIN
     Indication: Dyslipidaemia
     Dosage: ZUVAMOR 40 MG
  3. Amloc [Concomitant]
     Indication: Hypertension
     Dosage: AMLOC 10 MG
  4. ECOTRIN [Concomitant]
     Active Substance: ASPIRIN
     Indication: Myocardial ischaemia
     Dosage: ECOTRIN 81 MG
  5. Bedmiga [Concomitant]
     Indication: Product used for unknown indication
     Dosage: BEDMIGA 25 MG
  6. Rubaxin [Concomitant]
     Indication: Pain
     Dosage: RUBAXIN 2 MG BD
  7. VAGIFEM [Concomitant]
     Active Substance: ESTRADIOL
     Indication: Vaginal disorder

REACTIONS (2)
  - Transient ischaemic attack [Unknown]
  - Cerebrovascular accident [Not Recovered/Not Resolved]

NARRATIVE: CASE EVENT DATE: 20220101
